FAERS Safety Report 4385223-2 (Version None)
Quarter: 2004Q2

REPORT INFORMATION
  Report Type: 
  Country: None (occurrence: None)
  Receive Date: 20040625
  Receipt Date: 20021007
  Transmission Date: 20050107
  Serious: Yes (Disabling, Other)
  Sender: FDA-Public Use
  Company Number: GB-MERCK-0210GBR00055

PATIENT
  Age: 31 Year
  Sex: Female
  Weight: 88 kg

DRUGS (6)
  1. ACETAMINOPHEN AND CODEINE PHOSPHATE [Concomitant]
     Indication: PAIN
     Route: 048
     Dates: start: 20000101
  2. ALBUTEROL [Concomitant]
     Indication: ASTHMA
     Route: 055
  3. BECLOMETHASONE DIPROPIONATE [Concomitant]
     Indication: ASTHMA
     Route: 055
  4. IBUPROFEN [Concomitant]
     Indication: PAIN
     Route: 061
  5. VIOXX [Suspect]
     Indication: ARTHRALGIA
     Route: 048
     Dates: start: 20020909, end: 20020911
  6. SERTRALINE HYDROCHLORIDE [Suspect]
     Indication: DEPRESSION
     Route: 048
     Dates: start: 20020425

REACTIONS (5)
  - CONFUSIONAL STATE [None]
  - DIZZINESS [None]
  - DRUG INTERACTION [None]
  - MEMORY IMPAIRMENT [None]
  - VISION BLURRED [None]
